FAERS Safety Report 21031706 (Version 1)
Quarter: 2022Q3

REPORT INFORMATION
  Report Type: Spontaneous
  Country: US (occurrence: None)
  Receive Date: 20220701
  Receipt Date: 20220701
  Transmission Date: 20221027
  Serious: No
  Sender: FDA-Public Use
  Company Number: US-ROCHE-2936747

PATIENT
  Sex: Female
  Weight: 54.480 kg

DRUGS (4)
  1. ACTEMRA [Suspect]
     Active Substance: TOCILIZUMAB
     Indication: Rheumatoid arthritis
     Dosage: YES
     Route: 065
  2. DULOXETINE [Concomitant]
     Active Substance: DULOXETINE
     Indication: Pain
     Dosage: YES
  3. LOSARTAN POTASSIUM [Concomitant]
     Active Substance: LOSARTAN POTASSIUM
     Indication: Blood pressure increased
     Dosage: YES
  4. OXYCODONE [Concomitant]
     Active Substance: OXYCODONE
     Indication: Pain
     Dosage: YES

REACTIONS (1)
  - Actinic keratosis [Recovered/Resolved]
